FAERS Safety Report 13526409 (Version 1)
Quarter: 2017Q2

REPORT INFORMATION
  Report Type: Spontaneous
  Country: FR (occurrence: FR)
  Receive Date: 20170509
  Receipt Date: 20170509
  Transmission Date: 20170830
  Serious: Yes (Other)
  Sender: FDA-Public Use
  Company Number: FR-ACCORD-051167

PATIENT
  Age: 70 Year
  Sex: Male

DRUGS (19)
  1. FOLINIC ACID [Suspect]
     Active Substance: LEUCOVORIN
     Indication: ADENOCARCINOMA OF COLON
     Route: 042
     Dates: start: 20160524
  2. AERIUS [Concomitant]
     Active Substance: DESLORATADINE
     Indication: PREMEDICATION
  3. OXALIPLATIN. [Suspect]
     Active Substance: OXALIPLATIN
     Indication: ADENOCARCINOMA OF COLON
     Route: 042
     Dates: start: 20161102
  4. PANTOPRAZOLE [Concomitant]
     Active Substance: PANTOPRAZOLE
  5. FLUOROURACIL ACCORD [Suspect]
     Active Substance: FLUOROURACIL
     Indication: ADENOCARCINOMA OF COLON
     Dosage: STRENGTH: 50 MG/ML
     Route: 042
     Dates: start: 20160524
  6. CRESTOR [Concomitant]
     Active Substance: ROSUVASTATIN CALCIUM
  7. XANAX [Concomitant]
     Active Substance: ALPRAZOLAM
     Indication: PREMEDICATION
  8. IRINOTECAN [Suspect]
     Active Substance: IRINOTECAN
     Indication: ADENOCARCINOMA OF COLON
     Dates: start: 20160524
  9. KARDEGIC [Concomitant]
     Active Substance: ASPIRIN LYSINE
  10. DIFFU K [Concomitant]
     Active Substance: POTASSIUM CHLORIDE
  11. CALCIDOSE [Concomitant]
     Active Substance: CALCIUM CARBONATE
  12. POLARAMINE [Concomitant]
     Active Substance: DEXCHLORPHENIRAMINE MALEATE
     Indication: PREMEDICATION
     Dosage: 1 VIAL
  13. PERINDOPRIL/PERINDOPRIL ERBUMINE [Concomitant]
  14. DOLIPRANE [Concomitant]
     Active Substance: ACETAMINOPHEN
     Indication: PREMEDICATION
  15. AVASTIN [Suspect]
     Active Substance: BEVACIZUMAB
     Indication: ADENOCARCINOMA OF COLON
     Dosage: STRENGTH: 25 MG/ML
     Route: 028
     Dates: start: 20160524
  16. SINGULAIR [Concomitant]
     Active Substance: MONTELUKAST SODIUM
     Indication: PREMEDICATION
  17. CARDENSIEL [Concomitant]
     Active Substance: BISOPROLOL FUMARATE
     Indication: HYPERTENSION
  18. CREON [Concomitant]
     Active Substance: PANCRELIPASE AMYLASE\PANCRELIPASE LIPASE\PANCRELIPASE PROTEASE
  19. UROREC [Concomitant]
     Active Substance: SILODOSIN

REACTIONS (9)
  - Hypersensitivity [Unknown]
  - Blood bilirubin increased [Unknown]
  - Tongue oedema [Unknown]
  - Pyrexia [Unknown]
  - Hypertension [Recovered/Resolved]
  - Livedo reticularis [Recovered/Resolved]
  - Chills [Recovered/Resolved]
  - Pallor [Unknown]
  - Erythema [Unknown]

NARRATIVE: CASE EVENT DATE: 20161118
